FAERS Safety Report 21856333 (Version 2)
Quarter: 2023Q1

REPORT INFORMATION
  Report Type: Report from Study
  Country: BE (occurrence: BE)
  Receive Date: 20230112
  Receipt Date: 20230122
  Transmission Date: 20230418
  Serious: Yes (Hospitalization)
  Sender: FDA-Public Use
  Company Number: BE-JNJFOC-20230102915

PATIENT
  Age: 25 Year
  Sex: Male
  Weight: 81 kg

DRUGS (1)
  1. USTEKINUMAB [Suspect]
     Active Substance: USTEKINUMAB
     Indication: Pouchitis
     Route: 058
     Dates: start: 20200901

REACTIONS (1)
  - Chronic tonsillitis [Recovered/Resolved]

NARRATIVE: CASE EVENT DATE: 20221107
